FAERS Safety Report 22367244 (Version 3)
Quarter: 2023Q2

REPORT INFORMATION
  Report Type: Spontaneous
  Country: AU (occurrence: AU)
  Receive Date: 20230525
  Receipt Date: 20230613
  Transmission Date: 20230721
  Serious: Yes (Other)
  Sender: FDA-Public Use
  Company Number: AU-PFIZER INC-202300160166

PATIENT
  Age: 57 Year
  Sex: Male
  Weight: 85 kg

DRUGS (1)
  1. CAVERJECT IMPULSE [Suspect]
     Active Substance: ALPROSTADIL
     Indication: Erectile dysfunction
     Dosage: 20 MG AS REQUIRED
     Dates: start: 2020

REACTIONS (5)
  - Syringe issue [Unknown]
  - Poor quality device used [Unknown]
  - Needle issue [Unknown]
  - Skin injury [Unknown]
  - Incorrect dose administered by device [Unknown]

NARRATIVE: CASE EVENT DATE: 20230201
